FAERS Safety Report 17083153 (Version 1)
Quarter: 2019Q4

REPORT INFORMATION
  Report Type: Spontaneous
  Country: DE (occurrence: DE)
  Receive Date: 20191127
  Receipt Date: 20191127
  Transmission Date: 20200122
  Serious: Yes (Death)
  Sender: FDA-Public Use
  Company Number: DE-BTCP PHARMA-BTC201911-000412

PATIENT
  Sex: Male

DRUGS (3)
  1. NORFENTANYL [Suspect]
     Active Substance: NORFENTANYL
     Indication: PRODUCT USED FOR UNKNOWN INDICATION
  2. FENTANYL. [Suspect]
     Active Substance: FENTANYL
     Indication: PRODUCT USED FOR UNKNOWN INDICATION
  3. 4-METHYLPENTEDRONE [Suspect]
     Active Substance: 4-METHYLPENTEDRONE
     Indication: PRODUCT USED FOR UNKNOWN INDICATION

REACTIONS (2)
  - Incorrect route of product administration [Unknown]
  - Toxicity to various agents [Fatal]
